FAERS Safety Report 16922516 (Version 2)
Quarter: 2019Q4

REPORT INFORMATION
  Report Type: Spontaneous
  Country: JP (occurrence: JP)
  Receive Date: 20191016
  Receipt Date: 20191029
  Transmission Date: 20200122
  Serious: Yes (Other)
  Sender: FDA-Public Use
  Company Number: JP-AMGEN-JPNSP2019168760

PATIENT
  Age: 61 Year
  Sex: Male
  Weight: 48 kg

DRUGS (3)
  1. VECTIBIX [Suspect]
     Active Substance: PANITUMUMAB
     Indication: COLON CANCER RECURRENT
     Dosage: 300 MILLIGRAM
     Route: 042
     Dates: start: 20190228, end: 20190522
  2. DEXART [Suspect]
     Active Substance: DEXAMETHASONE SODIUM PHOSPHATE
     Indication: ALLERGY PROPHYLAXIS
     Dosage: 3.3 MILLIGRAM
     Route: 042
     Dates: start: 20190228, end: 20190522
  3. CLENAFIN [Suspect]
     Active Substance: EFINACONAZOLE
     Indication: DERMATOPHYTOSIS OF NAIL
     Dosage: UNK UNK, QD
     Route: 062
     Dates: start: 20190424

REACTIONS (4)
  - Colon cancer recurrent [Unknown]
  - Disease progression [Unknown]
  - Hypomagnesaemia [Recovered/Resolved]
  - Rash [Unknown]

NARRATIVE: CASE EVENT DATE: 20190410
